FAERS Safety Report 5618185-8 (Version None)
Quarter: 2008Q1

REPORT INFORMATION
  Report Type: 
  Country: None (occurrence: None)
  Receive Date: 20080207
  Receipt Date: 20071126
  Transmission Date: 20080703
  Serious: No
  Sender: FDA-Public Use
  Company Number: A0695719A

PATIENT
  Age: 63 Year
  Sex: Male

DRUGS (9)
  1. PAXIL [Suspect]
     Indication: ANXIETY DISORDER
     Dosage: 20MG PER DAY
     Route: 048
  2. WELLBUTRIN [Suspect]
     Indication: ANXIETY DISORDER
     Route: 048
  3. PAXIL CR [Suspect]
     Indication: ANXIETY DISORDER
     Dosage: 25MG UNKNOWN
     Route: 048
  4. ASPIRIN [Concomitant]
  5. SINEMET [Concomitant]
  6. DITROPAN XL [Concomitant]
  7. OSCAL D [Concomitant]
  8. NEXIUM [Concomitant]
  9. ZOCOR [Concomitant]

REACTIONS (5)
  - ANXIETY [None]
  - DEPRESSION [None]
  - DRUG INEFFECTIVE [None]
  - ERECTILE DYSFUNCTION [None]
  - LIBIDO DECREASED [None]
